FAERS Safety Report 8404322-9 (Version None)
Quarter: 2012Q2

REPORT INFORMATION
  Report Type: 
  Country: None (occurrence: None)
  Receive Date: 20120601
  Receipt Date: 20120525
  Transmission Date: 20120825
  Serious: Yes (Congenital Anomaly, Other)
  Sender: FDA-Public Use
  Company Number: US-PFIZER INC-2012064597

PATIENT
  Sex: Male
  Weight: 3.5 kg

DRUGS (11)
  1. SERTRALINE HYDROCHLORIDE [Suspect]
     Indication: DEPRESSION
     Dosage: 100 MG TABLETS TAKE HALF TO ONE TABLET ONCE DAILY
     Route: 064
     Dates: start: 20070312
  2. SERTRALINE HYDROCHLORIDE [Suspect]
     Indication: AFFECTIVE DISORDER
  3. CHROMAGEN FA [Concomitant]
     Dosage: UNK, ONCE A DAY
     Route: 064
     Dates: start: 20080425
  4. ZOLOFT [Suspect]
     Dosage: 100MG HALF TABLET
     Route: 064
     Dates: start: 20080208, end: 20081008
  5. ZOLOFT [Suspect]
     Dosage: 50 MG, 1X/DAY
     Route: 064
     Dates: start: 20080425, end: 20090422
  6. ZOLOFT [Suspect]
     Dosage: 100 MG, 1X/DAY
     Route: 064
     Dates: start: 20081008, end: 20100510
  7. FLEXERIL [Concomitant]
     Dosage: 10 MG, 3X/DAY
     Dates: start: 20080425
  8. ZOLOFT [Suspect]
     Indication: ANXIETY
     Dosage: 100 MG, 1X/DAY
     Route: 064
     Dates: start: 20071113
  9. SERTRALINE HYDROCHLORIDE [Suspect]
     Indication: ANXIETY
     Dosage: 50 MG, 1X/DAY
     Route: 064
     Dates: start: 20070529
  10. ACETAMINOPHEN [Concomitant]
     Dosage: UNK
     Route: 064
  11. AMOXICILLIN [Concomitant]
     Dosage: 20 ML, 3X/DAY
     Route: 064
     Dates: start: 20071113, end: 20100209

REACTIONS (15)
  - MATERNAL EXPOSURE DURING PREGNANCY [None]
  - VENTRICULAR SEPTAL DEFECT [None]
  - RIGHT VENTRICULAR HYPERTROPHY [None]
  - CONGENITAL MITRAL VALVE STENOSIS [None]
  - ATRIAL SEPTAL DEFECT [None]
  - HYPOPLASTIC LEFT HEART SYNDROME [None]
  - TRICUSPID VALVE INCOMPETENCE [None]
  - COARCTATION OF THE AORTA [None]
  - VENTRICULAR HYPOPLASIA [None]
  - ATRIOVENTRICULAR SEPTAL DEFECT [None]
  - AORTA HYPOPLASIA [None]
  - BICUSPID AORTIC VALVE [None]
  - PATENT DUCTUS ARTERIOSUS [None]
  - MITRAL VALVE HYPOPLASIA [None]
  - CONGENITAL AORTIC STENOSIS [None]
